FAERS Safety Report 5060060-4 (Version None)
Quarter: 2006Q2

REPORT INFORMATION
  Report Type: 
  Country: None (occurrence: None)
  Receive Date: 20060630
  Receipt Date: 20060123
  Transmission Date: 20061013
  Serious: Yes (Other)
  Sender: FDA-Public Use
  Company Number: 433414

PATIENT
  Age: 84 Year
  Sex: Male

DRUGS (1)
  1. CELLCEPT [Suspect]

REACTIONS (1)
  - PANCREATITIS [None]
